FAERS Safety Report 4657720-3 (Version None)
Quarter: 2005Q2

REPORT INFORMATION
  Report Type: 
  Country: None (occurrence: None)
  Receive Date: 20050404
  Receipt Date: 20041216
  Transmission Date: 20051028
  Serious: No
  Sender: FDA-Public Use
  Company Number: USA041286735

PATIENT
  Age: 34 Year
  Sex: Male

DRUGS (2)
  1. CYMBALTA [Suspect]
     Dosage: 30 MG/D IN THE EVENING
     Dates: start: 20041215
  2. TRAZODONE [Concomitant]

REACTIONS (1)
  - DYSPHEMIA [None]
